FAERS Safety Report 8260845-7 (Version None)
Quarter: 2012Q2

REPORT INFORMATION
  Report Type: 
  Country: None (occurrence: None)
  Receive Date: 20120402
  Receipt Date: 20120326
  Transmission Date: 20120825
  Serious: Yes (Other)
  Sender: FDA-Public Use
  Company Number: 2011SP059039

PATIENT
  Sex: Female

DRUGS (3)
  1. PEG-INTRON [Suspect]
     Dosage: UNK;UNK
     Dates: start: 20111212
  2. VICTRELIS [Suspect]
     Dosage: UNK;UNK
     Dates: start: 20120109
  3. RIBAVIRIN [Suspect]
     Dosage: UNK;UNK
     Dates: start: 20111212

REACTIONS (8)
  - MANIA [None]
  - ANAEMIA [None]
  - CONFUSIONAL STATE [None]
  - DEPRESSION [None]
  - CRYING [None]
  - NAUSEA [None]
  - BIPOLAR DISORDER [None]
  - PAIN [None]
